FAERS Safety Report 7063451-5 (Version None)
Quarter: 2010Q4

REPORT INFORMATION
  Report Type: 
  Country: None (occurrence: None)
  Receive Date: 20101026
  Receipt Date: 20100216
  Transmission Date: 20110411
  Serious: No
  Sender: FDA-Public Use
  Company Number: US-ABBOTT-10P-163-0626895-00

PATIENT
  Sex: Female
  Weight: 72.64 kg

DRUGS (3)
  1. LUPRON DEPOT [Suspect]
     Indication: UTERINE POLYP
     Dates: start: 20090923, end: 20090923
  2. LUPRON DEPOT [Suspect]
     Dates: start: 20091029
  3. NORVASC [Suspect]
     Indication: HYPERTENSION
     Dates: start: 20090923

REACTIONS (8)
  - ASTHENIA [None]
  - BONE PAIN [None]
  - FLUSHING [None]
  - HAIR GROWTH ABNORMAL [None]
  - HOT FLUSH [None]
  - JOINT SWELLING [None]
  - MUSCLE SPASMS [None]
  - PALPITATIONS [None]
